FAERS Safety Report 9676047 (Version 1)
Quarter: 2013Q4

REPORT INFORMATION
  Report Type: Report from Study
  Country: MX (occurrence: MX)
  Receive Date: 20131107
  Receipt Date: 20131107
  Transmission Date: 20140711
  Serious: Yes (Death)
  Sender: FDA-Public Use
  Company Number: PHHY2013MX126095

PATIENT
  Age: 68 Year
  Sex: Male

DRUGS (3)
  1. GALVUS MET [Suspect]
     Dosage: UNK UKN, UNK
  2. DIOVAN [Suspect]
     Indication: HYPERTENSION
     Dosage: 2 DF (320 MG), DAILY
     Route: 048
  3. EXFORGE [Suspect]
     Indication: HYPERTENSION
     Dosage: UNK UKN, UNK
     Route: 048
     Dates: start: 2012

REACTIONS (3)
  - Cardiac arrest [Fatal]
  - Cardiac disorder [Fatal]
  - Gastric ulcer [Fatal]
